FAERS Safety Report 8179626-8 (Version None)
Quarter: 2012Q1

REPORT INFORMATION
  Report Type: 
  Country: None (occurrence: None)
  Receive Date: 20120302
  Receipt Date: 20120223
  Transmission Date: 20120608
  Serious: Yes (Other)
  Sender: FDA-Public Use
  Company Number: FR-SANOFI-AVENTIS-2012SA012356

PATIENT
  Age: 53 Year
  Sex: Male

DRUGS (2)
  1. GLUCOPHAGE [Concomitant]
     Route: 048
     Dates: start: 20120101
  2. LANTUS [Suspect]
     Route: 058
     Dates: start: 20120101

REACTIONS (1)
  - VISUAL ACUITY REDUCED [None]
